FAERS Safety Report 6392041-2 (Version None)
Quarter: 2009Q4

REPORT INFORMATION
  Report Type: 
  Country: None (occurrence: None)
  Receive Date: 20091007
  Receipt Date: 20091001
  Transmission Date: 20100525
  Serious: Yes (Death)
  Sender: FDA-Public Use
  Company Number: SE-ROCHE-659937

PATIENT

DRUGS (2)
  1. CAPECITABINE [Suspect]
     Route: 065
     Dates: start: 20081203
  2. DOCETAXEL [Suspect]
     Indication: OESOPHAGEAL CARCINOMA
     Dosage: DOSING AMOUNT: 30 MG/M2; FORMULATION: INFUSION
     Route: 042

REACTIONS (1)
  - CONFUSIONAL STATE [None]
